FAERS Safety Report 16982855 (Version 1)
Quarter: 2019Q4

REPORT INFORMATION
  Report Type: Spontaneous
  Country: US (occurrence: US)
  Receive Date: 20191030
  Receipt Date: 20191030
  Transmission Date: 20200122
  Serious: Yes (Life-Threatening, Hospitalization)
  Sender: FDA-Public Use
  Company Number: None

PATIENT
  Age: 63 Year
  Sex: Female
  Weight: 103.3 kg

DRUGS (12)
  1. IPRATROPIUM-ALBUTEROL 0.5-2.5 MG/3ML 1 AMPULE Q4H PRN [Concomitant]
  2. APIXABAN [Suspect]
     Active Substance: APIXABAN
     Indication: ATRIAL FIBRILLATION
     Route: 048
     Dates: start: 20191008, end: 20191011
  3. FLUOXETINE 40 MG PO BID [Concomitant]
  4. GABAPENTIN 200 MG PO BID [Concomitant]
  5. VANCOMYCIN 1.25 G IV Q12H [Concomitant]
  6. METOPROLOL 5 MG IV Q6H PRN [Concomitant]
  7. ACETAMINOPHEN 650 MG PO Q6H PRN PAIN [Concomitant]
  8. CLONAZEPAM 0.5 MG PO TID [Concomitant]
  9. FAMOTIDINE 20 MG IV BID [Concomitant]
  10. HYDROXYZINE 50 MG PO QHS [Concomitant]
  11. AMIODARONE 200 MG PO DAILY [Concomitant]
  12. ATORVASTATIN 40 MG PO QHS [Concomitant]

REACTIONS (4)
  - Epistaxis [None]
  - Haemoglobin decreased [None]
  - Embolism arterial [None]
  - Pulseless electrical activity [None]

NARRATIVE: CASE EVENT DATE: 20191011
